FAERS Safety Report 6831523-3 (Version None)
Quarter: 2010Q3

REPORT INFORMATION
  Report Type: 
  Country: None (occurrence: None)
  Receive Date: 20100712
  Receipt Date: 20100628
  Transmission Date: 20110219
  Serious: Yes (Other)
  Sender: FDA-Public Use
  Company Number: PHHY2010US42368

PATIENT
  Sex: Female

DRUGS (13)
  1. RECLAST [Suspect]
     Dosage: UNK
     Dates: start: 20090401
  2. FUROSEMIDE [Concomitant]
  3. SYNTHROID [Concomitant]
  4. SPIRONOLACTONE [Concomitant]
  5. CALCIUM [Concomitant]
  6. FOLIC ACID [Concomitant]
  7. MULTI-VITAMINS [Concomitant]
  8. VITAMIN D [Concomitant]
  9. VITAMIN B-12 [Concomitant]
  10. MAGNESIUM [Concomitant]
  11. IRON [Concomitant]
  12. ACTONEL [Concomitant]
  13. ARIMIDEX [Concomitant]

REACTIONS (1)
  - BREAST CANCER [None]
